FAERS Safety Report 19892849 (Version 5)
Quarter: 2021Q4

REPORT INFORMATION
  Report Type: Spontaneous
  Country: US (occurrence: US)
  Receive Date: 20210928
  Receipt Date: 20211201
  Transmission Date: 20220303
  Serious: Yes (Other)
  Sender: FDA-Public Use
  Company Number: US-CELGENE-USA-20210906600

PATIENT
  Sex: Female

DRUGS (2)
  1. INREBIC [Suspect]
     Active Substance: FEDRATINIB HYDROCHLORIDE
     Indication: Myelofibrosis
     Dosage: 200 MILLIGRAM
     Route: 048
     Dates: start: 20210212
  2. INREBIC [Suspect]
     Active Substance: FEDRATINIB HYDROCHLORIDE
     Dosage: 200 MILLIGRAM
     Route: 048
     Dates: start: 20210430

REACTIONS (11)
  - Haemoglobin decreased [Unknown]
  - Stress [Unknown]
  - Alopecia [Unknown]
  - Peripheral swelling [Recovering/Resolving]
  - Platelet count decreased [Unknown]
  - Fatigue [Unknown]
  - Hypersomnia [Unknown]
  - Blood creatinine increased [Unknown]
  - Rash [Unknown]
  - Blood potassium decreased [Unknown]
  - Spleen disorder [Unknown]

NARRATIVE: CASE EVENT DATE: 20210101
